FAERS Safety Report 7222644-4 (Version None)
Quarter: 2011Q1

REPORT INFORMATION
  Report Type: 
  Country: None (occurrence: None)
  Receive Date: 20110112
  Receipt Date: 20101231
  Transmission Date: 20110831
  Serious: Yes (Other)
  Sender: FDA-Public Use
  Company Number: US-CELGENEUS-163-21880-10120596

PATIENT
  Sex: Female

DRUGS (19)
  1. REVLIMID [Suspect]
     Route: 048
     Dates: start: 20090301, end: 20100411
  2. REVLIMID [Suspect]
     Route: 048
     Dates: start: 20100422, end: 20100902
  3. K-DUR [Concomitant]
     Route: 048
  4. OMEPRAZOLE [Concomitant]
     Route: 048
  5. CALCITRIOL [Concomitant]
     Route: 048
  6. DEXAMETHASONE [Concomitant]
     Route: 048
  7. LASIX [Concomitant]
     Route: 048
  8. NITROGLYCERIN [Concomitant]
     Route: 060
  9. LEVOXYL [Concomitant]
     Route: 048
  10. LORTAB [Concomitant]
     Dosage: 7.5/500, 500MG-7.5MG
     Route: 048
  11. RENVELA [Concomitant]
     Route: 048
  12. VASOTEC [Concomitant]
     Route: 048
  13. REVLIMID [Suspect]
     Route: 048
     Dates: start: 20101102
  14. TYLENOL ARTHRITIS EXTENED RELEASE [Concomitant]
     Route: 048
  15. ASPIRIN [Concomitant]
     Route: 048
  16. CIPROFLOXACIN [Concomitant]
     Route: 048
  17. MIRALAX [Concomitant]
     Route: 048
  18. NEURONTIN [Concomitant]
     Route: 048
  19. SODIUM BICARBONATE [Concomitant]
     Route: 048

REACTIONS (3)
  - VULVAL CANCER [None]
  - BLOOD TEST ABNORMAL [None]
  - ANAEMIA [None]
